FAERS Safety Report 8824376 (Version 1)
Quarter: 2012Q4

REPORT INFORMATION
  Report Type: 
  Country: US (occurrence: US)
  Receive Date: 20121004
  Receipt Date: 20121004
  Transmission Date: 20130627
  Serious: Yes (Other)
  Sender: FDA-Public Use
  Company Number: US-SHIRE-ALL1-2012-04532

PATIENT
  Age: 50 Year
  Sex: Female

DRUGS (1)
  1. ADDERALL XR [Suspect]
     Indication: ATTENTION DEFICIT/HYPERACTIVITY DISORDER
     Dosage: UNK, Unknown
     Route: 048

REACTIONS (3)
  - Hallucination [Unknown]
  - Psychotic disorder [Unknown]
  - Paranoia [Unknown]
